FAERS Safety Report 9323019 (Version 3)
Quarter: 2014Q1

REPORT INFORMATION
  Report Type: Spontaneous
  Country: US (occurrence: US)
  Receive Date: 20130603
  Receipt Date: 20140219
  Transmission Date: 20141002
  Serious: Yes (Hospitalization)
  Sender: FDA-Public Use
  Company Number: US-B.I. PHARMACEUTICALS,INC./RIDGEFIELD-2013-BI-14868BP

PATIENT
  Age: 62 Year
  Sex: Male
  Weight: 80.74 kg

DRUGS (5)
  1. PRADAXA [Suspect]
     Indication: ATRIAL FIBRILLATION
     Dates: start: 201112, end: 20120125
  2. ASPIRIN [Concomitant]
  3. LISINOPRIL [Concomitant]
     Dosage: 5 MG
     Route: 048
  4. AMIODARONE [Concomitant]
     Indication: HEART RATE ABNORMAL
     Route: 048
  5. METOPROLOL TARTRATE [Concomitant]
     Indication: CARDIAC DISORDER
     Dosage: 50 MG
     Route: 048

REACTIONS (5)
  - Gastrointestinal haemorrhage [Recovered/Resolved]
  - Nausea [Unknown]
  - Vomiting [Unknown]
  - Gastrooesophageal reflux disease [Unknown]
  - Headache [Unknown]
